FAERS Safety Report 10172508 (Version 2)
Quarter: 2017Q1

REPORT INFORMATION
  Report Type: Report from Study
  Country: US (occurrence: US)
  Receive Date: 20140515
  Receipt Date: 20170308
  Transmission Date: 20170428
  Serious: Yes (Other)
  Sender: FDA-Public Use
  Company Number: US-SA-2014SA060808

PATIENT
  Age: 57 Year
  Sex: Female

DRUGS (4)
  1. LUMIGAN [Concomitant]
     Active Substance: BIMATOPROST
  2. AUBAGIO [Suspect]
     Active Substance: TERIFLUNOMIDE
     Indication: MULTIPLE SCLEROSIS
     Route: 048
     Dates: start: 20140404
  3. TIMOLOL. [Concomitant]
     Active Substance: TIMOLOL
  4. DORZOLAMIDE [Concomitant]
     Active Substance: DORZOLAMIDE

REACTIONS (5)
  - Gait disturbance [Recovering/Resolving]
  - Optic nerve disorder [Not Recovered/Not Resolved]
  - Optic neuritis [Recovered/Resolved]
  - Multiple sclerosis [Not Recovered/Not Resolved]
  - Muscular weakness [Not Recovered/Not Resolved]

NARRATIVE: CASE EVENT DATE: 20140417
